FAERS Safety Report 12654126 (Version 1)
Quarter: 2016Q3

REPORT INFORMATION
  Report Type: Spontaneous
  Country: US (occurrence: None)
  Receive Date: 20160815
  Receipt Date: 20160815
  Transmission Date: 20161109
  Serious: No
  Sender: FDA-Public Use
  Company Number: None

PATIENT
  Age: 63 Year
  Sex: Male
  Weight: 77.11 kg

DRUGS (3)
  1. AMBIEN [Suspect]
     Active Substance: ZOLPIDEM TARTRATE
     Indication: MIDDLE INSOMNIA
     Route: 048
     Dates: start: 20160809, end: 20160810
  2. AMBIEN [Suspect]
     Active Substance: ZOLPIDEM TARTRATE
     Indication: INITIAL INSOMNIA
     Route: 048
     Dates: start: 20160809, end: 20160810
  3. LOTRIL [Concomitant]
     Active Substance: ENALAPRIL MALEATE

REACTIONS (2)
  - Somnambulism [None]
  - Legal problem [None]

NARRATIVE: CASE EVENT DATE: 20160809
